FAERS Safety Report 24208008 (Version 1)
Quarter: 2024Q3

REPORT INFORMATION
  Report Type: Spontaneous
  Country: US (occurrence: US)
  Receive Date: 20240814
  Receipt Date: 20240814
  Transmission Date: 20241016
  Serious: No
  Sender: PAREXEL
  Company Number: US-COHERUS BIOSCIENCES, Inc 2024-COH-US000499

PATIENT

DRUGS (5)
  1. LOQTORZI [Suspect]
     Active Substance: TORIPALIMAB-TPZI
     Indication: Prophylaxis
     Dosage: 240 MG, Q3WEEKS
     Route: 041
     Dates: start: 20240614, end: 20240614
  2. LOQTORZI [Suspect]
     Active Substance: TORIPALIMAB-TPZI
     Dosage: 240 MG, Q3WEEKS
     Route: 041
     Dates: start: 20240712, end: 20240712
  3. LOQTORZI [Suspect]
     Active Substance: TORIPALIMAB-TPZI
     Dosage: 240 MG, Q3WEEKS
     Route: 041
  4. CARBOPLATIN [Concomitant]
     Active Substance: CARBOPLATIN
     Dosage: UNK
  5. GEMZAR [Concomitant]
     Active Substance: GEMCITABINE HYDROCHLORIDE
     Dosage: UNK

REACTIONS (2)
  - Hypertension [Unknown]
  - Product use in unapproved indication [Unknown]

NARRATIVE: CASE EVENT DATE: 20240614
